FAERS Safety Report 12073853 (Version 1)
Quarter: 2016Q1

REPORT INFORMATION
  Report Type: Report from Study
  Country: US (occurrence: US)
  Receive Date: 20160212
  Receipt Date: 20160212
  Transmission Date: 20160526
  Serious: Yes (Death, Hospitalization, Other)
  Sender: FDA-Public Use
  Company Number: US-ASTELLAS-2016US005080

PATIENT
  Age: 52 Year

DRUGS (3)
  1. ERLOTINIB [Suspect]
     Active Substance: ERLOTINIB
     Indication: PANCREATIC CARCINOMA
     Dosage: 150 MG, CYCLIC (DAILY ON DAYS 1-5, 8-12 AND 15-26
     Route: 048
     Dates: start: 20060822
  2. BEVACIZUMAB [Suspect]
     Active Substance: BEVACIZUMAB
     Indication: PANCREATIC CARCINOMA
     Dosage: 10 MG/KG, CYCLIC, OVER 60-90 MINUTES ON DAYS 1 AND 15
     Route: 042
     Dates: start: 20060822
  3. GEMCITABINE [Suspect]
     Active Substance: GEMCITABINE\GEMCITABINE HYDROCHLORIDE
     Indication: PANCREATIC CARCINOMA
     Dosage: 1000 MG/M2, CYCLIC OVER 30 MINUTES ON DAYS 1, 8 AND 15.
     Route: 042
     Dates: start: 20060822

REACTIONS (3)
  - Vomiting [Unknown]
  - Small intestinal obstruction [Unknown]
  - Death [Fatal]

NARRATIVE: CASE EVENT DATE: 20070122
